FAERS Safety Report 7178048-6 (Version None)
Quarter: 2010Q4

REPORT INFORMATION
  Report Type: 
  Country: None (occurrence: None)
  Receive Date: 20101220
  Receipt Date: 20101209
  Transmission Date: 20110411
  Serious: Yes (Hospitalization, Congenital Anomaly)
  Sender: FDA-Public Use
  Company Number: A0680652A

PATIENT
  Sex: Female

DRUGS (8)
  1. PAXIL [Suspect]
     Indication: PRODUCT USED FOR UNKNOWN INDICATION
  2. PRENATAL VITAMINS [Concomitant]
  3. HALDOL [Concomitant]
  4. INSULIN [Concomitant]
  5. PROZAC [Concomitant]
  6. NIFEDIPINE [Concomitant]
  7. ALPHAGAN [Concomitant]
  8. EYE DROPS [Concomitant]

REACTIONS (15)
  - ADACTYLY [None]
  - ATRIAL SEPTAL DEFECT [None]
  - BREECH PRESENTATION [None]
  - CARDIOMEGALY [None]
  - CONGENITAL ANOMALY [None]
  - CONGENITAL MUSCULOSKELETAL ANOMALY [None]
  - DRUG EXPOSURE DURING PREGNANCY [None]
  - DYSMORPHISM [None]
  - HEART DISEASE CONGENITAL [None]
  - LIMB MALFORMATION [None]
  - MATERNAL DRUGS AFFECTING FOETUS [None]
  - PREMATURE BABY [None]
  - SMALL FOR DATES BABY [None]
  - TALIPES [None]
  - VENTRICULAR SEPTAL DEFECT [None]
